FAERS Safety Report 23569887 (Version 1)
Quarter: 2024Q1

REPORT INFORMATION
  Report Type: Spontaneous
  Country: SK (occurrence: SK)
  Receive Date: 20240227
  Receipt Date: 20240227
  Transmission Date: 20240410
  Serious: Yes (Hospitalization)
  Sender: FDA-Public Use
  Company Number: SK-ABBVIE-4232727

PATIENT
  Age: 52 Year
  Sex: Female

DRUGS (13)
  1. ADALIMUMAB [Suspect]
     Active Substance: ADALIMUMAB\ISOPROPYL ALCOHOL
     Indication: Rheumatoid arthritis
     Dosage: UNK
     Route: 058
     Dates: start: 202110, end: 202201
  2. ADALIMUMAB [Suspect]
     Active Substance: ADALIMUMAB\ISOPROPYL ALCOHOL
     Dosage: UNK (FIRST ADMIN DATE- 2022)
     Route: 058
     Dates: end: 202208
  3. HYDROXYCHLOROQUINE [Concomitant]
     Active Substance: HYDROXYCHLOROQUINE
     Indication: Product used for unknown indication
     Dosage: UNK
     Route: 065
     Dates: start: 201102, end: 201105
  4. HYDROXYCHLOROQUINE [Concomitant]
     Active Substance: HYDROXYCHLOROQUINE
     Dosage: UNK
     Route: 065
     Dates: start: 201706
  5. LEFLUNOMIDE [Concomitant]
     Active Substance: LEFLUNOMIDE
     Indication: Product used for unknown indication
     Dosage: 20 MG
     Route: 065
     Dates: start: 202011
  6. PREDNISONE [Concomitant]
     Active Substance: PREDNISONE
     Indication: Product used for unknown indication
     Dosage: 10 MG
     Route: 065
     Dates: start: 201704
  7. PREDNISONE [Concomitant]
     Active Substance: PREDNISONE
     Dosage: 5 MG
     Route: 065
     Dates: start: 201810
  8. PREDNISONE [Concomitant]
     Active Substance: PREDNISONE
     Dosage: 5 MG
     Route: 065
     Dates: start: 202205
  9. PREDNISONE [Concomitant]
     Active Substance: PREDNISONE
     Dosage: UNK
     Route: 065
     Dates: start: 202012
  10. PREDNISONE [Concomitant]
     Active Substance: PREDNISONE
     Dosage: 10.000MG
     Route: 065
     Dates: start: 201704
  11. PREDNISONE [Concomitant]
     Active Substance: PREDNISONE
     Indication: Product used for unknown indication
     Dosage: 5.000MG
     Route: 065
     Dates: start: 201810
  12. PREDNISONE [Concomitant]
     Active Substance: PREDNISONE
     Dosage: 5.000MG
     Route: 065
     Dates: start: 202205
  13. PREDNISONE [Concomitant]
     Active Substance: PREDNISONE
     Route: 065
     Dates: start: 202012

REACTIONS (13)
  - Nodule [Unknown]
  - Mass [Unknown]
  - Leukopenia [Unknown]
  - Disease recurrence [Unknown]
  - Pyrexia [Unknown]
  - Pneumonia chlamydial [Unknown]
  - Weight decreased [Unknown]
  - Arthritis [Unknown]
  - Asthenia [Unknown]
  - Respiratory syncytial virus infection [Unknown]
  - Borrelia infection [Unknown]
  - Yersinia infection [Unknown]
  - Tenosynovitis [Unknown]

NARRATIVE: CASE EVENT DATE: 20220101
